FAERS Safety Report 24787096 (Version 2)
Quarter: 2024Q4

REPORT INFORMATION
  Report Type: Spontaneous
  Country: US (occurrence: US)
  Receive Date: 20241230
  Receipt Date: 20241231
  Transmission Date: 20250115
  Serious: No
  Sender: Haleon PLC
  Company Number: US-HALEON-2219255

PATIENT

DRUGS (1)
  1. FLONASE ALLERGY RELIEF [Suspect]
     Active Substance: FLUTICASONE PROPIONATE
     Indication: Product used for unknown indication
     Dosage: 2 - APPLICATION (AP)
     Route: 045
     Dates: end: 20241226

REACTIONS (3)
  - Dyspnoea [Recovering/Resolving]
  - Throat irritation [Recovering/Resolving]
  - Oropharyngeal discomfort [Recovering/Resolving]
